FAERS Safety Report 8790516 (Version 1)
Quarter: 2012Q4

REPORT INFORMATION
  Report Type: Spontaneous
  Country: US (occurrence: None)
  Receive Date: 20120911
  Receipt Date: 20120911
  Transmission Date: 20130627
  Serious: No
  Sender: FDA-Public Use
  Company Number: None

PATIENT
  Sex: Male

DRUGS (3)
  1. TRAVATAN [Suspect]
  2. LUMIGAN [Suspect]
  3. LATANOPROST [Suspect]

REACTIONS (5)
  - Photophobia [None]
  - Ocular hyperaemia [None]
  - Eye irritation [None]
  - Eye discharge [None]
  - Therapeutic response unexpected with drug substitution [None]
